FAERS Safety Report 19275650 (Version 1)
Quarter: 2021Q2

REPORT INFORMATION
  Report Type: Report from Study
  Country: US (occurrence: US)
  Receive Date: 20210519
  Receipt Date: 20210519
  Transmission Date: 20210717
  Serious: No
  Sender: FDA-Public Use
  Company Number: US-VANDA PHARMACEUTICALS, INC-2020ILOUS001817

PATIENT
  Age: 12 Year
  Sex: Male
  Weight: 61.22 kg

DRUGS (5)
  1. METFORMIN [Concomitant]
     Active Substance: METFORMIN HYDROCHLORIDE
     Indication: PRODUCT USED FOR UNKNOWN INDICATION
     Dosage: 500 MILLIGRAM, BID
     Dates: start: 20201023
  2. COGENTIN [Concomitant]
     Active Substance: BENZTROPINE MESYLATE
     Indication: PRODUCT USED FOR UNKNOWN INDICATION
     Dosage: 1 MILLIGRAM, BID
  3. FANAPT [Suspect]
     Active Substance: ILOPERIDONE
     Dosage: 4 MILLIGRAM, QD
     Dates: start: 202011, end: 20201116
  4. FANAPT [Suspect]
     Active Substance: ILOPERIDONE
     Dosage: 1 MILLIGRAM
     Dates: start: 202011
  5. FANAPT [Suspect]
     Active Substance: ILOPERIDONE
     Indication: EMOTIONAL DISORDER
     Dosage: 2 MILLIGRAM, BID
     Dates: start: 20200928, end: 202010

REACTIONS (5)
  - Product administered to patient of inappropriate age [Unknown]
  - Excessive eye blinking [Unknown]
  - Discomfort [Unknown]
  - Blepharospasm [Unknown]
  - Eye movement disorder [Recovered/Resolved]

NARRATIVE: CASE EVENT DATE: 202010
